FAERS Safety Report 24412282 (Version 1)
Quarter: 2024Q4

REPORT INFORMATION
  Report Type: Spontaneous
  Country: US (occurrence: None)
  Receive Date: 20241007
  Receipt Date: 20241007
  Transmission Date: 20250114
  Serious: Yes (Hospitalization)
  Sender: Public
  Company Number: None

PATIENT
  Age: 20 Year
  Sex: Male
  Weight: 58.5 kg

DRUGS (4)
  1. OPDIVO [Suspect]
     Active Substance: NIVOLUMAB
     Indication: Malignant melanoma
     Dates: start: 20240731, end: 20240823
  2. YERVOY [Suspect]
     Active Substance: IPILIMUMAB
     Indication: Malignant melanoma
     Dosage: OTHER FREQUENCY : EVERY 6 WEEKS;?
     Dates: start: 20240731, end: 20240823
  3. PEMBROLIZUMAB [Suspect]
     Active Substance: PEMBROLIZUMAB
  4. PEMBROLIZUMAB [Suspect]
     Active Substance: PEMBROLIZUMAB

REACTIONS (3)
  - Malignant melanoma [None]
  - Disease progression [None]
  - Liver function test increased [None]

NARRATIVE: CASE EVENT DATE: 20241007
